FAERS Safety Report 12977888 (Version 1)
Quarter: 2016Q4

REPORT INFORMATION
  Report Type: Spontaneous
  Country: US (occurrence: US)
  Receive Date: 20161128
  Receipt Date: 20161128
  Transmission Date: 20170207
  Serious: No
  Sender: FDA-Public Use
  Company Number: US-BAYER-2016-224624

PATIENT
  Sex: Female
  Weight: 120.1 kg

DRUGS (6)
  1. ADVIL [Concomitant]
     Active Substance: IBUPROFEN
  2. TENORMIN [Concomitant]
     Active Substance: ATENOLOL
     Indication: BLOOD PRESSURE MANAGEMENT
     Dosage: UNK
  3. TYLENOL [Concomitant]
     Active Substance: ACETAMINOPHEN
     Indication: OSTEOARTHRITIS
     Dosage: 2 DF, UNK
  4. ALEVE [Suspect]
     Active Substance: NAPROXEN SODIUM
     Indication: PRODUCT USED FOR UNKNOWN INDICATION
     Dosage: 400 MG, QD
     Route: 048
     Dates: start: 201512, end: 20151209
  5. GLUCOSAMINE [Concomitant]
     Active Substance: GLUCOSAMINE
     Indication: OSTEOARTHRITIS
     Dosage: 1500 MG, UNK
  6. ALEVE [Suspect]
     Active Substance: NAPROXEN SODIUM
     Indication: PAIN IN EXTREMITY

REACTIONS (4)
  - Back pain [Recovering/Resolving]
  - Product use issue [None]
  - Abdominal discomfort [Recovering/Resolving]
  - Headache [Recovered/Resolved]
